FAERS Safety Report 21974041 (Version 1)
Quarter: 2023Q1

REPORT INFORMATION
  Report Type: Spontaneous
  Country: DE (occurrence: DE)
  Receive Date: 20230209
  Receipt Date: 20230209
  Transmission Date: 20230417
  Serious: Yes (Other)
  Sender: FDA-Public Use
  Company Number: DE-EMBRYOTOX-202109666

PATIENT
  Age: 1 Day
  Sex: Female
  Weight: 2.72 kg

DRUGS (3)
  1. ZONISAMIDE [Suspect]
     Active Substance: ZONISAMIDE
     Indication: Epilepsy
     Dosage: 475 [MG/D ]/ 225-0-250 MG/D
     Route: 064
     Dates: start: 20210516, end: 20220301
  2. PERAMPANEL [Suspect]
     Active Substance: PERAMPANEL
     Indication: Epilepsy
     Dosage: 6 MILLIGRAM, QD, 6 [MG/D ]
     Route: 064
     Dates: start: 20210516, end: 20220301
  3. FOLIC ACID [Concomitant]
     Active Substance: FOLIC ACID
     Indication: Prophylaxis of neural tube defect
     Dosage: 5 MILLIGRAM, QD, 5 [MG/D ]
     Route: 064
     Dates: start: 20210516, end: 20220301

REACTIONS (2)
  - Small for dates baby [Recovered/Resolved]
  - Foetal exposure during pregnancy [Unknown]

NARRATIVE: CASE EVENT DATE: 20220301
